FAERS Safety Report 11302884 (Version 1)
Quarter: 2015Q3

REPORT INFORMATION
  Report Type: Spontaneous
  Country: AR (occurrence: AR)
  Receive Date: 20150723
  Receipt Date: 20150723
  Transmission Date: 20151125
  Serious: Yes (Other)
  Sender: FDA-Public Use
  Company Number: CHPA2015AR008701

PATIENT
  Age: 37 Year
  Sex: Male

DRUGS (2)
  1. NICOTINELL [Suspect]
     Active Substance: NICOTINE
     Indication: SMOKING CESSATION THERAPY
     Dosage: 24 DF, DAILY
     Route: 065
     Dates: start: 2012, end: 2013
  2. NICOTINELL [Suspect]
     Active Substance: NICOTINE
     Dosage: 24 DF, DAILY
     Route: 065
     Dates: start: 201412

REACTIONS (1)
  - Drug dependence [Not Recovered/Not Resolved]

NARRATIVE: CASE EVENT DATE: 2015
